FAERS Safety Report 10592730 (Version 5)
Quarter: 2015Q2

REPORT INFORMATION
  Report Type: Spontaneous
  Country: IT (occurrence: IT)
  Receive Date: 20141119
  Receipt Date: 20150421
  Transmission Date: 20150821
  Serious: Yes (Hospitalization)
  Sender: FDA-Public Use
  Company Number: IT-PFIZER INC-2014316198

PATIENT
  Age: 59 Year
  Sex: Male

DRUGS (8)
  1. ALPRAZOLAM. [Suspect]
     Active Substance: ALPRAZOLAM
     Dosage: 20 MG, TOTAL, SINGLE
     Route: 048
     Dates: start: 20140912, end: 20140912
  2. ENALAPRIL [Concomitant]
     Active Substance: ENALAPRIL
     Dosage: 96 MG, TOTAL, SINGLE
     Route: 048
     Dates: start: 20140912, end: 20140912
  3. SEROQUEL [Suspect]
     Active Substance: QUETIAPINE FUMARATE
     Dosage: 60 DF TOTAL, SINGLE
     Route: 048
     Dates: start: 20140912, end: 20140912
  4. FLUVOXAMINE [Concomitant]
     Active Substance: FLUVOXAMINE
     Dosage: 3200 MG, UNK
     Dates: start: 20140912, end: 20140912
  5. AMISULPRIDE [Suspect]
     Active Substance: AMISULPRIDE
     Dosage: 600 MG, TOTAL, SINGLE
     Route: 048
     Dates: start: 20140912, end: 20140912
  6. KCL RETARD [Concomitant]
     Active Substance: POTASSIUM CHLORIDE
     Dosage: 70 DF, TOTAL, SINGLE
     Route: 048
     Dates: start: 20140912, end: 20140912
  7. LORAZEPAM. [Suspect]
     Active Substance: LORAZEPAM
     Dosage: 165 MG, TOTAL, SINGLE
     Route: 048
     Dates: start: 20140912, end: 20140912
  8. FELISON [Suspect]
     Active Substance: FLURAZEPAM MONOHYDROCHLORIDE
     Dosage: 30 DF, TOTAL, SINGLE
     Route: 048
     Dates: start: 20140912, end: 20140912

REACTIONS (2)
  - Drug abuse [Recovered/Resolved]
  - Sopor [Recovered/Resolved]

NARRATIVE: CASE EVENT DATE: 20140912
